FAERS Safety Report 26128007 (Version 1)
Quarter: 2025Q4

REPORT INFORMATION
  Report Type: Spontaneous
  Country: US (occurrence: US)
  Receive Date: 20251206
  Receipt Date: 20251206
  Transmission Date: 20260117
  Serious: Yes (Hospitalization)
  Sender: AMGEN
  Company Number: US-AMGEN-USASP2025237796

PATIENT
  Age: 28 Year
  Sex: Male

DRUGS (3)
  1. ROMIPLOSTIM [Suspect]
     Active Substance: ROMIPLOSTIM
     Indication: Immune thrombocytopenia
     Dosage: UNK, QWK (FOR 7 DOSES RANGING FROM 1 TO 6 AUG/KG)
     Route: 065
  2. Immunoglobulin [Concomitant]
     Indication: Immune thrombocytopenia
     Dosage: UNK
     Route: 040
  3. CORTICOSTEROID NOS [Concomitant]
     Active Substance: CORTICOSTEROID NOS
     Indication: Immune thrombocytopenia

REACTIONS (4)
  - Diabetes insipidus [Recovered/Resolved]
  - Incision site pain [Unknown]
  - Intestinal pseudo-obstruction [Unknown]
  - Treatment failure [Unknown]
